FAERS Safety Report 10154753 (Version 1)
Quarter: 2014Q2

REPORT INFORMATION
  Report Type: Spontaneous
  Country: US (occurrence: None)
  Receive Date: 20140505
  Receipt Date: 20140505
  Transmission Date: 20141212
  Serious: No
  Sender: FDA-Public Use
  Company Number: None

PATIENT
  Age: 40 Year
  Sex: Male

DRUGS (6)
  1. SOVALDI [Suspect]
     Indication: HEPATITIS C
     Route: 048
  2. ALPRAZOLAM [Suspect]
  3. PAROXETINE [Suspect]
  4. PEGASYS [Suspect]
  5. RIBAVIRIN [Suspect]
  6. LEVAQUIN [Suspect]

REACTIONS (5)
  - Headache [None]
  - Nausea [None]
  - Vomiting [None]
  - Asthenia [None]
  - Toothache [None]
